FAERS Safety Report 9993036 (Version 2)
Quarter: 2014Q1

REPORT INFORMATION
  Report Type: Spontaneous
  Country: FR (occurrence: FR)
  Receive Date: 20140310
  Receipt Date: 20140310
  Transmission Date: 20141002
  Serious: Yes (Other)
  Sender: FDA-Public Use
  Company Number: FR-SA-BMS16295131

PATIENT
  Age: 80 Year
  Sex: Female

DRUGS (7)
  1. COAPROVEL TABS 300MG/ 25MG [Suspect]
     Indication: PRODUCT USED FOR UNKNOWN INDICATION
     Dosage: FILM COATED TABS FOR MORE THAN 3 YEARS?1DF:1 TABLET
     Route: 048
     Dates: end: 20110915
  2. GLUCOVANCE [Suspect]
     Indication: PRODUCT USED FOR UNKNOWN INDICATION
     Dosage: 1DF=1 TABS?FILM COATED TABS?MORE THAN 3 YEARS
     Route: 048
     Dates: end: 20110915
  3. METOJECT [Suspect]
     Indication: PRODUCT USED FOR UNKNOWN INDICATION
     Dosage: FOR MORE THAN 10 YEARS
     Route: 048
     Dates: end: 20110915
  4. ARTOTEC [Suspect]
     Indication: PRODUCT USED FOR UNKNOWN INDICATION
     Dosage: ARTOTEC 75 MG/0.2 MG ?1DF=1FILM-COATED TABLET
     Route: 048
     Dates: end: 20110915
  5. MOPRAL [Concomitant]
     Dosage: MOPRAL 10 MG ?1DF:1TABLET?ENTERIC COATED TABLET?MORE THAN 3 YEARS
     Route: 048
  6. LORAZEPAM [Concomitant]
     Dosage: IN THE EVNG
     Route: 048
  7. DOLIPRANE [Concomitant]
     Dosage: DOLIPRANE  500MG
     Route: 048

REACTIONS (1)
  - Hepatic fibrosis [Recovered/Resolved]
